FAERS Safety Report 5047172-6 (Version None)
Quarter: 2006Q3

REPORT INFORMATION
  Report Type: 
  Country: None (occurrence: None)
  Receive Date: 20060703
  Receipt Date: 20060623
  Transmission Date: 20061208
  Serious: Yes (Other)
  Sender: FDA-Public Use
  Company Number: CHPA2006US06193

PATIENT
  Age: 50 Year
  Sex: Male
  Weight: 68.9 kg

DRUGS (1)
  1. EXCEDRIN (MIGRAINE) [Suspect]
     Indication: MIGRAINE
     Dosage: 2 DF, EVERY 4-5 HOURS, QD, ORAL
     Route: 048

REACTIONS (3)
  - DRUG ABUSER [None]
  - NO ADVERSE DRUG EFFECT [None]
  - OVERDOSE [None]
